APPROVED DRUG PRODUCT: OMNISCAN
Active Ingredient: GADODIAMIDE
Strength: 28.7GM/100ML (287MG/ML)
Dosage Form/Route: INJECTABLE;INJECTION
Application: N022066 | Product #002
Applicant: GE HEALTHCARE
Approved: Sep 5, 2007 | RLD: Yes | RS: No | Type: DISCN